FAERS Safety Report 4674293-X (Version None)
Quarter: 2005Q2

REPORT INFORMATION
  Report Type: 
  Country: None (occurrence: None)
  Receive Date: 20050526
  Receipt Date: 20050518
  Transmission Date: 20051028
  Serious: Yes (Hospitalization)
  Sender: FDA-Public Use
  Company Number: US-BOEHRINGER INGELHEIM PHARMACEUTICALS, INC.-2005-BP-08205BP

PATIENT
  Sex: Female

DRUGS (2)
  1. MOBIC [Suspect]
     Indication: ARTHRALGIA
     Route: 048
     Dates: start: 20050510, end: 20050512
  2. MOBIC [Suspect]
     Indication: MUSCULOSKELETAL DISCOMFORT

REACTIONS (3)
  - HEADACHE [None]
  - NECK PAIN [None]
  - SUBARACHNOID HAEMORRHAGE [None]
